FAERS Safety Report 4426943-0 (Version None)
Quarter: 2004Q3

REPORT INFORMATION
  Report Type: 
  Country: None (occurrence: None)
  Receive Date: 20040811
  Receipt Date: 20040728
  Transmission Date: 20050211
  Serious: Yes (Other)
  Sender: FDA-Public Use
  Company Number: 200660

PATIENT
  Age: 37 Year
  Sex: Male
  Weight: 90.7194 kg

DRUGS (8)
  1. AVONEX [Suspect]
     Indication: MULTIPLE SCLEROSIS
     Dosage: 30 MCG QW IM
     Route: 030
     Dates: start: 19980801, end: 20011101
  2. AVONEX [Suspect]
     Indication: MULTIPLE SCLEROSIS
     Dosage: 30 MCG QW IM
     Route: 030
     Dates: start: 20031101
  3. PROVIGIL [Concomitant]
  4. AMANTADINE HCL [Concomitant]
  5. EFFEXOR [Concomitant]
  6. FOLTX [Concomitant]
  7. DILTIAZEM [Concomitant]
  8. LORTAB [Concomitant]

REACTIONS (12)
  - ANXIETY [None]
  - CONDITION AGGRAVATED [None]
  - COUGH [None]
  - FATIGUE [None]
  - HYPOAESTHESIA [None]
  - INSOMNIA [None]
  - MULTIPLE SCLEROSIS [None]
  - NODULE ON EXTREMITY [None]
  - PARAESTHESIA [None]
  - PYREXIA [None]
  - SARCOIDOSIS [None]
  - WHEEZING [None]
